FAERS Safety Report 11287861 (Version 1)
Quarter: 2015Q3

REPORT INFORMATION
  Report Type: Spontaneous
  Country: US (occurrence: US)
  Receive Date: 20150721
  Receipt Date: 20150721
  Transmission Date: 20151125
  Serious: No
  Sender: FDA-Public Use
  Company Number: US-UNITED THERAPEUTICS-UNT-2015-001328

PATIENT
  Age: 1 Year
  Sex: Female
  Weight: 9.7 kg

DRUGS (2)
  1. REMODULIN [Suspect]
     Active Substance: TREPROSTINIL
     Indication: PULMONARY HYPERTENSION
     Dosage: 0.032 ?G/KG/MIN, CONTINUING
     Route: 058
     Dates: start: 20150121
  2. SILDENAFIL. [Concomitant]
     Active Substance: SILDENAFIL
     Indication: PRODUCT USED FOR UNKNOWN INDICATION

REACTIONS (7)
  - Infusion site erythema [Not Recovered/Not Resolved]
  - Infusion site oedema [Not Recovered/Not Resolved]
  - Drug dose omission [Unknown]
  - Infusion site irritation [Unknown]
  - Infusion site rash [Not Recovered/Not Resolved]
  - Infusion site pustule [Not Recovered/Not Resolved]
  - Thrombosis in device [Unknown]

NARRATIVE: CASE EVENT DATE: 201502
